FAERS Safety Report 9443612 (Version 2)
Quarter: 2013Q4

REPORT INFORMATION
  Report Type: Spontaneous
  Country: JP (occurrence: None)
  Receive Date: 20130802
  Receipt Date: 20131004
  Transmission Date: 20140711
  Serious: Yes (Hospitalization)
  Sender: FDA-Public Use
  Company Number: ABR_00993_2013

PATIENT
  Sex: Male
  Weight: 64.1 kg

DRUGS (2)
  1. GLIADEL [Suspect]
     Indication: MALIGNANT GLIOMA
     Dosage: INTRACEREBRAL
     Dates: start: 20130130, end: 20130620
  2. TEMODAL [Suspect]
     Indication: MALIGNANT GLIOMA
     Route: 048
     Dates: start: 20130218

REACTIONS (2)
  - Meningitis bacterial [None]
  - Sinusitis [None]
